FAERS Safety Report 20985857 (Version 1)
Quarter: 2022Q2

REPORT INFORMATION
  Report Type: Report from Study
  Country: CA (occurrence: CA)
  Receive Date: 20220621
  Receipt Date: 20220621
  Transmission Date: 20220721
  Serious: Yes (Other)
  Sender: FDA-Public Use
  Company Number: CA-JNJFOC-20220218418

PATIENT
  Age: 39 Year
  Sex: Female

DRUGS (2)
  1. REMICADE [Suspect]
     Active Substance: INFLIXIMAB
     Indication: Crohn^s disease
     Dosage: LAST INFUSION WAS ON 16-MAR-2022
     Route: 042
  2. COVID-19 VACCINE [Concomitant]
     Indication: COVID-19 prophylaxis
     Dosage: 3 VACCINE RECEIVED
     Route: 065

REACTIONS (10)
  - Anal abscess [Unknown]
  - Oral herpes [Unknown]
  - COVID-19 [Unknown]
  - Fistula discharge [Recovering/Resolving]
  - Fall [Unknown]
  - Abdominal distension [Unknown]
  - Aphthous ulcer [Unknown]
  - Infrequent bowel movements [Unknown]
  - Fistula [Unknown]
  - Abdominal pain [Unknown]

NARRATIVE: CASE EVENT DATE: 20220206
